FAERS Safety Report 8845063 (Version 2)
Quarter: 2012Q4

REPORT INFORMATION
  Report Type: 
  Country: CN (occurrence: CN)
  Receive Date: 20121017
  Receipt Date: 20121023
  Transmission Date: 20130627
  Serious: Yes (Death, Other)
  Sender: FDA-Public Use
  Company Number: CN-PFIZER INC-2012255435

PATIENT
  Age: 62 Year
  Sex: Male

DRUGS (1)
  1. SUTENT [Suspect]
     Indication: GASTROINTESTINAL STROMAL TUMOUR
     Dosage: 37.5 mg, 1x/day
     Route: 048
     Dates: start: 201011

REACTIONS (4)
  - Multi-organ failure [Fatal]
  - White blood cell count decreased [Unknown]
  - Blood pressure decreased [Unknown]
  - Nasopharyngitis [Unknown]
